FAERS Safety Report 4806734-9 (Version None)
Quarter: 2005Q4

REPORT INFORMATION
  Report Type: 
  Country: None (occurrence: None)
  Receive Date: 20051019
  Receipt Date: 20051011
  Transmission Date: 20060501
  Serious: Yes (Hospitalization, Other)
  Sender: FDA-Public Use
  Company Number: FRWYE050212OCT05

PATIENT
  Age: 47 Year
  Sex: Female

DRUGS (8)
  1. OXAZEPAM [Suspect]
     Dosage: 50 MG 1X PER 1 DAY, ORAL
     Route: 048
     Dates: start: 20041201
  2. CLOZAPINE [Suspect]
     Dosage: SEE IMAGE
     Route: 048
     Dates: start: 20050510, end: 20050623
  3. CLOZAPINE [Suspect]
     Dosage: SEE IMAGE
     Route: 048
     Dates: start: 20050624, end: 20050628
  4. CLOZAPINE [Suspect]
     Dosage: SEE IMAGE
     Route: 048
     Dates: start: 20050629
  5. VALPROATE SODIUM [Suspect]
     Dosage: 600 MG 1X PER 1 DAY, ORAL
     Route: 048
     Dates: start: 20050322
  6. EQUANIL [Suspect]
     Indication: SLEEP DISORDER
     Dosage: ORAL
     Route: 048
     Dates: start: 20050428
  7. IMOVANE      (ZOPLICONE, 0) [Suspect]
     Indication: SLEEP DISORDER
     Dosage: ORAL
     Route: 048
     Dates: start: 20050211
  8. SULFARLEM           (ANETHOLE TRITHIONE) [Suspect]
     Dosage: 25 MG 1X PER 1 DAY, ORAL
     Route: 048
     Dates: start: 20050218

REACTIONS (1)
  - HYPOTENSION [None]
